FAERS Safety Report 8270754-5 (Version None)
Quarter: 2012Q2

REPORT INFORMATION
  Report Type: 
  Country: None (occurrence: None)
  Receive Date: 20120410
  Receipt Date: 20120402
  Transmission Date: 20120825
  Serious: Yes (Hospitalization)
  Sender: FDA-Public Use
  Company Number: US-BAYER-2012-028727

PATIENT
  Age: 32 Year
  Sex: Female
  Weight: 99.773 kg

DRUGS (10)
  1. YAZ [Suspect]
     Indication: CONTRACEPTION
     Dosage: UNK
     Route: 048
     Dates: start: 20080201, end: 20080901
  2. HYDROCODONE BITARTRATE AND ACETAMINOPHEN [Concomitant]
     Indication: PAIN
     Dosage: 5 MG, UNK
     Route: 048
     Dates: start: 20110805
  3. HYDROCODONE BITARTRATE AND ACETAMINOPHEN [Concomitant]
     Dosage: 500 MG, UNK
     Route: 048
     Dates: start: 20110805
  4. TREXIMET [Concomitant]
     Indication: MIGRAINE
     Dosage: 85 MG, UNK
     Route: 048
     Dates: start: 20081128
  5. CAMBIA [Concomitant]
     Dosage: 500 MG, POWDER PACK
     Dates: start: 20110504, end: 20111009
  6. YAZ [Suspect]
     Indication: ACNE
     Dosage: UNK
     Dates: start: 20091001, end: 20110701
  7. NAPROXEN [Concomitant]
     Dosage: UNK
     Dates: start: 20110101
  8. YAZ [Suspect]
     Indication: PREMENSTRUAL SYNDROME
     Dosage: UNK
     Dates: start: 20111001, end: 20120201
  9. TREXIMET [Concomitant]
     Dosage: 500 MG, UNK
     Route: 048
     Dates: start: 20081128, end: 20110630
  10. PROMETHAZINE [Concomitant]
     Indication: NAUSEA
     Dosage: 25 MG, UNK
     Route: 048
     Dates: start: 20110805

REACTIONS (12)
  - EMOTIONAL DISTRESS [None]
  - ABDOMINAL DISTENSION [None]
  - GENERAL PHYSICAL HEALTH DETERIORATION [None]
  - NAUSEA [None]
  - CHOLECYSTITIS CHRONIC [None]
  - ABDOMINAL DISCOMFORT [None]
  - DIARRHOEA [None]
  - INJURY [None]
  - ANXIETY [None]
  - PAIN [None]
  - CHOLELITHIASIS [None]
  - BLOOD CHOLESTEROL INCREASED [None]
